APPROVED DRUG PRODUCT: ACTICLATE CAP
Active Ingredient: DOXYCYCLINE HYCLATE
Strength: EQ 75MG BASE
Dosage Form/Route: CAPSULE;ORAL
Application: N208253 | Product #001
Applicant: CHARTWELL RX SCIENCES LLC
Approved: Apr 26, 2016 | RLD: Yes | RS: No | Type: DISCN